FAERS Safety Report 5918552-9 (Version None)
Quarter: 2008Q4

REPORT INFORMATION
  Report Type: 
  Country: None (occurrence: None)
  Receive Date: 20081014
  Receipt Date: 20081014
  Transmission Date: 20090506
  Serious: Yes (Hospitalization)
  Sender: FDA-Public Use
  Company Number: None

PATIENT
  Age: 79 Year
  Sex: Male

DRUGS (4)
  1. PLAVIX [Suspect]
     Indication: ANGIOPLASTY
  2. ASPIRIN [Concomitant]
  3. ATENOLOL [Concomitant]
  4. PANTOPRAZOLE SODIUM [Concomitant]

REACTIONS (5)
  - CARDIO-RESPIRATORY ARREST [None]
  - DERMATITIS ALLERGIC [None]
  - DIALYSIS [None]
  - RASH MACULO-PAPULAR [None]
  - TUBULOINTERSTITIAL NEPHRITIS [None]
